FAERS Safety Report 8193093-X (Version None)
Quarter: 2012Q1

REPORT INFORMATION
  Report Type: 
  Country: None (occurrence: None)
  Receive Date: 20120308
  Receipt Date: 20120308
  Transmission Date: 20120608
  Serious: Yes (Other)
  Sender: FDA-Public Use
  Company Number: None

PATIENT
  Sex: Male
  Weight: 79 kg

DRUGS (1)
  1. PROPECIA [Suspect]
     Indication: ALOPECIA
     Dosage: 1.0 MG
     Route: 048
     Dates: start: 20100410, end: 20100518

REACTIONS (7)
  - FATIGUE [None]
  - MENTAL IMPAIRMENT [None]
  - ERECTILE DYSFUNCTION [None]
  - AMNESIA [None]
  - LOSS OF LIBIDO [None]
  - DYSARTHRIA [None]
  - COGNITIVE DISORDER [None]
